FAERS Safety Report 4444899-1 (Version None)
Quarter: 2004Q3

REPORT INFORMATION
  Report Type: 
  Country: None (occurrence: None)
  Receive Date: 20040909
  Receipt Date: 20040901
  Transmission Date: 20050211
  Serious: Yes (Hospitalization)
  Sender: FDA-Public Use
  Company Number: FR-GLAXOSMITHKLINE-B0344010A

PATIENT
  Age: 59 Year
  Sex: Male

DRUGS (4)
  1. COMBIVIR [Suspect]
     Indication: HIV INFECTION
     Dosage: 1TAB TWICE PER DAY
     Route: 048
     Dates: end: 20040618
  2. PROLEUKIN [Suspect]
     Indication: HIV INFECTION
     Dosage: 4.5U6 TWICE PER DAY
     Route: 058
     Dates: start: 20040524, end: 20040529
  3. VIRAMUNE [Suspect]
     Indication: HIV INFECTION
     Dosage: 200MG TWICE PER DAY
     Route: 048
     Dates: end: 20040618
  4. BACTRIM DS [Suspect]
     Dosage: 1TAB PER DAY
     Route: 048
     Dates: end: 20040618

REACTIONS (6)
  - ABDOMINAL PAIN [None]
  - BLOOD AMYLASE INCREASED [None]
  - CYTOLYTIC HEPATITIS [None]
  - LIPASE INCREASED [None]
  - PANCREATITIS ACUTE [None]
  - VOMITING [None]
